FAERS Safety Report 5016418-2 (Version None)
Quarter: 2006Q2

REPORT INFORMATION
  Report Type: 
  Country: None (occurrence: None)
  Receive Date: 20060602
  Receipt Date: 20060526
  Transmission Date: 20061013
  Serious: Yes (Life-Threatening, Hospitalization)
  Sender: FDA-Public Use
  Company Number: 2006AP02427

PATIENT
  Age: 76 Year
  Sex: Female

DRUGS (10)
  1. MARCAINE [Suspect]
     Indication: SPINAL ANAESTHESIA
     Dosage: 2.5 ML ADMINISTERED
     Route: 037
     Dates: start: 20060524, end: 20060524
  2. MARCAINE [Suspect]
     Indication: KNEE ARTHROPLASTY
     Dosage: 2.5 ML ADMINISTERED
     Route: 037
     Dates: start: 20060524, end: 20060524
  3. ANAPEINE [Suspect]
     Indication: EPIDURAL ANAESTHESIA
     Route: 008
     Dates: start: 20060524, end: 20060524
  4. ANAPEINE [Suspect]
     Indication: KNEE ARTHROPLASTY
     Route: 008
     Dates: start: 20060524, end: 20060524
  5. ANAPEINE [Suspect]
     Dosage: DILUTED ANAPEINE (10 MG/ML  (1%)) TO  0.15%
     Route: 008
     Dates: start: 20060524, end: 20060524
  6. ANAPEINE [Suspect]
     Dosage: DILUTED ANAPEINE (10 MG/ML  (1%)) TO  0.15%
     Route: 008
     Dates: start: 20060524, end: 20060524
  7. ANAPEINE [Suspect]
     Dosage: DILUTED ANAPEINE (10 MG/ML  (1%)) TO  0.15%
     Route: 008
     Dates: start: 20060524, end: 20060526
  8. ANAPEINE [Suspect]
     Dosage: DILUTED ANAPEINE (10 MG/ML  (1%)) TO  0.15%
     Route: 008
     Dates: start: 20060524, end: 20060526
  9. FENTANEST [Suspect]
     Route: 008
     Dates: start: 20060524, end: 20060526
  10. DOMPERIDONE [Suspect]
     Route: 008
     Dates: start: 20060524, end: 20060526

REACTIONS (1)
  - PULMONARY INFARCTION [None]
